FAERS Safety Report 7947910-6 (Version None)
Quarter: 2011Q4

REPORT INFORMATION
  Report Type: 
  Country: None (occurrence: None)
  Receive Date: 20111125
  Receipt Date: 20111115
  Transmission Date: 20120403
  Serious: Yes (Other)
  Sender: FDA-Public Use
  Company Number: JPI-P-018305

PATIENT
  Age: 67 Year
  Sex: Female
  Weight: 73.0291 kg

DRUGS (7)
  1. CLOMIPRAMINE HCL [Concomitant]
  2. UNSPECIFIED CHOLESTEROL MEDICATION [Concomitant]
  3. XYREM [Suspect]
     Indication: CATAPLEXY
     Dosage: ORAL
     Route: 048
     Dates: start: 20030101
  4. UNSPECIFIED ANTIHYPERTENSIVE [Concomitant]
  5. MODAFINIL [Concomitant]
  6. TIOPRONIN [Concomitant]
  7. FLUTICASONE PROPIONATE [Concomitant]

REACTIONS (2)
  - CONDITION AGGRAVATED [None]
  - URINARY INCONTINENCE [None]
